FAERS Safety Report 12369431 (Version 1)
Quarter: 2016Q2

REPORT INFORMATION
  Report Type: Spontaneous
  Country: US (occurrence: None)
  Receive Date: 20160513
  Receipt Date: 20160513
  Transmission Date: 20160815
  Serious: Yes (Life-Threatening)
  Sender: FDA-Public Use
  Company Number: None

PATIENT
  Age: 69 Year
  Sex: Female
  Weight: 97.52 kg

DRUGS (7)
  1. CARVEDILOL. [Concomitant]
     Active Substance: CARVEDILOL
  2. BUPROPION. [Concomitant]
     Active Substance: BUPROPION
  3. METFORMIN [Concomitant]
     Active Substance: METFORMIN HYDROCHLORIDE
  4. GLIPIZIDE. [Concomitant]
     Active Substance: GLIPIZIDE
  5. SPIRONOLACTONE. [Concomitant]
     Active Substance: SPIRONOLACTONE
  6. PERCOCET [Suspect]
     Active Substance: ACETAMINOPHEN\OXYCODONE HYDROCHLORIDE
     Indication: PROCEDURAL PAIN
     Dates: start: 20151104, end: 20151104
  7. MULTI VITAMIN [Concomitant]
     Active Substance: VITAMINS

REACTIONS (7)
  - Dysstasia [None]
  - Balance disorder [None]
  - Loss of consciousness [None]
  - Apnoea [None]
  - Dyspnoea [None]
  - Visual impairment [None]
  - Vomiting [None]

NARRATIVE: CASE EVENT DATE: 20151104
